FAERS Safety Report 20945051 (Version 1)
Quarter: 2022Q2

REPORT INFORMATION
  Report Type: Spontaneous
  Country: US (occurrence: None)
  Receive Date: 20220609
  Receipt Date: 20220609
  Transmission Date: 20220720
  Serious: Yes (Other)
  Sender: FDA-Public Use
  Company Number: None

PATIENT
  Age: 53 Year
  Sex: Female
  Weight: 76.2 kg

DRUGS (2)
  1. BEBTELOVIMAB [Suspect]
     Active Substance: BEBTELOVIMAB
     Indication: COVID-19
     Dosage: OTHER FREQUENCY : ONCE;?
     Route: 042
     Dates: start: 20220609, end: 20220609
  2. BEBTELOVIMAB [Concomitant]
     Active Substance: BEBTELOVIMAB
     Dates: start: 20220609, end: 20220609

REACTIONS (6)
  - Dizziness [None]
  - Dizziness [None]
  - Abdominal pain lower [None]
  - Diarrhoea [None]
  - Blood pressure decreased [None]
  - Blood pressure systolic decreased [None]

NARRATIVE: CASE EVENT DATE: 20220609
